FAERS Safety Report 14382462 (Version 1)
Quarter: 2018Q1

REPORT INFORMATION
  Report Type: Spontaneous
  Country: US (occurrence: US)
  Receive Date: 20180112
  Receipt Date: 20180112
  Transmission Date: 20180509
  Serious: Yes (Death, Other)
  Sender: FDA-Public Use
  Company Number: US-SUNOVION-2018SUN000089

PATIENT
  Age: 24 Year
  Sex: Female

DRUGS (7)
  1. LAMOTRIGINE. [Suspect]
     Active Substance: LAMOTRIGINE
  2. QUETIAPINE. [Suspect]
     Active Substance: QUETIAPINE
  3. LATUDA [Suspect]
     Active Substance: LURASIDONE HYDROCHLORIDE
     Route: 048
  4. ISOCARBOXAZID [Suspect]
     Active Substance: ISOCARBOXAZID
  5. DIAZEPAM. [Suspect]
     Active Substance: DIAZEPAM
  6. BUPROPION. [Suspect]
     Active Substance: BUPROPION
  7. CITALOPRAM [Suspect]
     Active Substance: CITALOPRAM HYDROBROMIDE

REACTIONS (1)
  - Completed suicide [Fatal]
